FAERS Safety Report 18996141 (Version 1)
Quarter: 2021Q1

REPORT INFORMATION
  Report Type: Spontaneous
  Country: US (occurrence: US)
  Receive Date: 20210311
  Receipt Date: 20210311
  Transmission Date: 20210420
  Serious: Yes (Hospitalization, Other)
  Sender: FDA-Public Use
  Company Number: US-LUPIN PHARMACEUTICALS INC.-2021-02976

PATIENT
  Sex: Female

DRUGS (5)
  1. HALOBETASOL PROPIONATE. [Suspect]
     Active Substance: HALOBETASOL PROPIONATE
     Indication: LICHEN SCLEROSUS
     Dosage: UNK
     Route: 061
  2. ACITRETIN. [Concomitant]
     Active Substance: ACITRETIN
     Indication: LICHEN SCLEROSUS
     Dosage: 25 MILLIGRAM, QD
     Route: 065
     Dates: start: 2019
  3. BETAMETHASONE DIPROPIONATE OINTMENT [Suspect]
     Active Substance: BETAMETHASONE DIPROPIONATE
     Indication: LICHEN SCLEROSUS
     Dosage: UNK
     Route: 061
     Dates: end: 2019
  4. CLOBETASOL [Suspect]
     Active Substance: CLOBETASOL
     Indication: LICHEN SCLEROSUS
     Dosage: UNK
     Route: 061
     Dates: end: 2019
  5. TACROLIMUS. [Concomitant]
     Active Substance: TACROLIMUS
     Indication: LICHEN SCLEROSUS
     Dosage: UNK
     Route: 061
     Dates: end: 2019

REACTIONS (2)
  - Squamous cell carcinoma of the vulva [Recovered/Resolved]
  - Skin squamous cell carcinoma recurrent [Recovered/Resolved]
